FAERS Safety Report 7063691-5 (Version None)
Quarter: 2010Q4

REPORT INFORMATION
  Report Type: 
  Country: None (occurrence: None)
  Receive Date: 20101026
  Receipt Date: 20101014
  Transmission Date: 20110411
  Serious: Yes (Hospitalization, Other)
  Sender: FDA-Public Use
  Company Number: BR-US-EMD SERONO, INC.-7000095

PATIENT
  Sex: Female

DRUGS (4)
  1. REBIF [Suspect]
     Indication: RELAPSING-REMITTING MULTIPLE SCLEROSIS
     Route: 058
     Dates: start: 20031008
  2. RIVOTRIL [Concomitant]
  3. PERIDAL [Concomitant]
  4. CELESTAMINE TAB [Concomitant]
     Indication: HYPERSENSITIVITY

REACTIONS (5)
  - BONE PAIN [None]
  - GALLBLADDER DISORDER [None]
  - HEPATIC STEATOSIS [None]
  - NEPHROLITHIASIS [None]
  - UTERINE LEIOMYOMA [None]
